FAERS Safety Report 26054029 (Version 1)
Quarter: 2025Q4

REPORT INFORMATION
  Report Type: Report from Study
  Country: MX (occurrence: MX)
  Receive Date: 20251117
  Receipt Date: 20251117
  Transmission Date: 20260118
  Serious: Yes (Death, Other)
  Sender: TAKEDA
  Company Number: MX-TAKEDA-MX202012134

PATIENT
  Age: 15 Year
  Sex: Male
  Weight: 37 kg

DRUGS (16)
  1. IDURSULFASE [Suspect]
     Active Substance: IDURSULFASE
     Indication: Mucopolysaccharidosis II
     Dosage: 21 MILLIGRAM, 1/WEEK
     Dates: start: 201208
  2. IDURSULFASE [Suspect]
     Active Substance: IDURSULFASE
     Dosage: 24 MILLIGRAM, 1/WEEK
     Dates: start: 20120815
  3. IDURSULFASE [Suspect]
     Active Substance: IDURSULFASE
     Dosage: 2 DOSAGE FORM
  4. IDURSULFASE [Suspect]
     Active Substance: IDURSULFASE
     Dosage: 3 DOSAGE FORM, 1/WEEK
     Dates: start: 20130723
  5. IDURSULFASE [Suspect]
     Active Substance: IDURSULFASE
     Dosage: 3 DOSAGE FORM
  6. IDURSULFASE [Suspect]
     Active Substance: IDURSULFASE
     Dosage: 18 MILLIGRAM, QD
  7. IDURSULFASE [Suspect]
     Active Substance: IDURSULFASE
     Dosage: 3 DOSAGE FORM, 1/WEEK
  8. IDURSULFASE [Suspect]
     Active Substance: IDURSULFASE
     Dosage: 21 MILLIGRAM, QD
  9. IDURSULFASE [Suspect]
     Active Substance: IDURSULFASE
     Dosage: 24 MILLIGRAM, 1/WEEK
  10. IDURSULFASE [Suspect]
     Active Substance: IDURSULFASE
     Dosage: 24 MILLIGRAM, 1/WEEK
  11. IDURSULFASE [Suspect]
     Active Substance: IDURSULFASE
     Dosage: UNK UNK, 1/WEEK
     Dates: end: 20251103
  12. NEOKAP LF [Concomitant]
     Indication: Product used for unknown indication
     Dosage: UNK
  13. CO EXALIV [Concomitant]
     Dosage: UNK
  14. ACETAMINOPHEN [Concomitant]
     Active Substance: ACETAMINOPHEN
     Dosage: UNK
  15. ACETAMINOPHEN\AMANTADINE\CHLORPHENIRAMINE [Concomitant]
     Active Substance: ACETAMINOPHEN\AMANTADINE\CHLORPHENIRAMINE
     Dosage: 10 MILLILITER, TID
  16. SULFAMETHOXAZOLE\TRIMETHOPRIM [Concomitant]
     Active Substance: SULFAMETHOXAZOLE\TRIMETHOPRIM
     Dosage: UNK

REACTIONS (27)
  - Death [Fatal]
  - Lacrimation increased [Recovered/Resolved]
  - Tachycardia [Recovered/Resolved]
  - Tachypnoea [Recovered/Resolved]
  - Pruritus [Recovered/Resolved]
  - Urticaria [Recovered/Resolved]
  - Poor venous access [Not Recovered/Not Resolved]
  - Gastric infection [Recovered/Resolved]
  - Infusion site bruising [Not Recovered/Not Resolved]
  - Infusion site pain [Not Recovered/Not Resolved]
  - Respiratory symptom [Recovering/Resolving]
  - Pharyngitis [Recovering/Resolving]
  - Influenza [Recovering/Resolving]
  - Abdominal pain upper [Recovered/Resolved]
  - Body temperature [Recovered/Resolved]
  - Generalised oedema [Not Recovered/Not Resolved]
  - Hypersomnia [Not Recovered/Not Resolved]
  - Respiratory disorder [Unknown]
  - Product availability issue [Not Recovered/Not Resolved]
  - Incorrect dose administered [Unknown]
  - Product dose omission issue [Not Recovered/Not Resolved]
  - Inappropriate schedule of product administration [Unknown]
  - Bone pain [Not Recovered/Not Resolved]
  - Cough [Not Recovered/Not Resolved]
  - Diarrhoea [Recovered/Resolved]
  - Headache [Recovered/Resolved]
  - Pyrexia [Not Recovered/Not Resolved]

NARRATIVE: CASE EVENT DATE: 20200330
